FAERS Safety Report 8554428-9 (Version None)
Quarter: 2012Q3

REPORT INFORMATION
  Report Type: 
  Country: None (occurrence: None)
  Receive Date: 20120731
  Receipt Date: 20120723
  Transmission Date: 20120928
  Serious: Yes (Hospitalization)
  Sender: FDA-Public Use
  Company Number: US-009507513-1207USA009841

PATIENT

DRUGS (7)
  1. OMEPRAZOLE [Concomitant]
  2. AMOXICILLIN [Concomitant]
  3. FOLIC ACID [Concomitant]
  4. CYANOCOBALAMIN [Concomitant]
  5. ALBUTEROL [Concomitant]
  6. ZOCOR [Suspect]
     Dosage: 40 MG, UNK
     Route: 048
  7. PREDNISOLONE [Suspect]
     Dosage: 30 MG, UNK
     Route: 048

REACTIONS (9)
  - HYPERTENSION [None]
  - PAIN [None]
  - RHABDOMYOLYSIS [None]
  - RENAL FAILURE ACUTE [None]
  - HAEMODIALYSIS [None]
  - PLATELET COUNT DECREASED [None]
  - TACHYCARDIA [None]
  - WHITE BLOOD CELL COUNT INCREASED [None]
  - HYPERKALAEMIA [None]
